FAERS Safety Report 9638327 (Version 1)
Quarter: 2013Q4

REPORT INFORMATION
  Report Type: Spontaneous
  Country: CO (occurrence: CO)
  Receive Date: 20131022
  Receipt Date: 20131022
  Transmission Date: 20140711
  Serious: Yes (Death)
  Sender: FDA-Public Use
  Company Number: CO-VIIV HEALTHCARE LIMITED-A1046183A

PATIENT
  Age: 65 Year
  Sex: Male

DRUGS (1)
  1. CELSENTRI [Suspect]
     Indication: HIV INFECTION
     Dosage: 600MG UNKNOWN
     Route: 048
     Dates: start: 20121030, end: 20130801

REACTIONS (3)
  - Tuberculosis [Fatal]
  - Multi-organ failure [Unknown]
  - Immune system disorder [Unknown]
